FAERS Safety Report 5852282-7 (Version None)
Quarter: 2008Q3

REPORT INFORMATION
  Report Type: 
  Country: None (occurrence: None)
  Receive Date: 20080821
  Receipt Date: 20080812
  Transmission Date: 20090109
  Serious: Yes (Other)
  Sender: FDA-Public Use
  Company Number: FR-AMGEN-US281194

PATIENT
  Age: 42 Year
  Sex: Female

DRUGS (1)
  1. ENBREL [Suspect]
     Indication: SPONDYLITIS
     Dosage: LYOPHILIZED (25 MG 2 TIMES WEEKLY)
     Route: 058
     Dates: start: 20041124, end: 20080101

REACTIONS (10)
  - CANDIDIASIS [None]
  - DENTAL CARIES [None]
  - DRUG EFFECT DECREASED [None]
  - ENAMEL ANOMALY [None]
  - PNEUMONIA PNEUMOCOCCAL [None]
  - STAPHYLOCOCCAL INFECTION [None]
  - SUPERINFECTION BACTERIAL [None]
  - SUPERINFECTION FUNGAL [None]
  - TOOTH DISORDER [None]
  - TOOTH LOSS [None]
